FAERS Safety Report 4525733-8 (Version None)
Quarter: 2004Q4

REPORT INFORMATION
  Report Type: 
  Country: None (occurrence: None)
  Receive Date: 20041116
  Receipt Date: 20040810
  Transmission Date: 20050328
  Serious: No
  Sender: FDA-Public Use
  Company Number: S04-USA-03944-01

PATIENT
  Age: 96 Year
  Sex: Male

DRUGS (8)
  1. NAMENDA [Suspect]
     Indication: MEMORY IMPAIRMENT
     Dosage: 10 MG BID PO
     Route: 048
     Dates: start: 20040707, end: 20040801
  2. NAMENDA [Suspect]
     Indication: MEMORY IMPAIRMENT
     Dosage: 5 MG QD PO
     Route: 048
     Dates: start: 20040616, end: 20040622
  3. NAMENDA [Suspect]
     Indication: MEMORY IMPAIRMENT
     Dosage: 5 MG BID PO
     Route: 048
     Dates: start: 20040623, end: 20040629
  4. NAMENDA [Suspect]
     Indication: MEMORY IMPAIRMENT
     Dosage: 10 MG QAM PO
     Route: 048
     Dates: start: 20040630, end: 20040706
  5. NAMENDA [Suspect]
     Indication: MEMORY IMPAIRMENT
     Dosage: 5 MG QHS PO
     Route: 048
     Dates: start: 20040630, end: 20040706
  6. NAMENDA [Suspect]
     Indication: MEMORY IMPAIRMENT
     Dosage: 20 MG ONCE PO
     Route: 048
     Dates: start: 20040708, end: 20040708
  7. DITROPAN [Concomitant]
  8. SINEMET [Concomitant]

REACTIONS (5)
  - DIZZINESS [None]
  - FATIGUE [None]
  - HEADACHE [None]
  - HYPERSOMNIA [None]
  - MEDICATION ERROR [None]
